FAERS Safety Report 17807843 (Version 1)
Quarter: 2020Q2

REPORT INFORMATION
  Report Type: Spontaneous
  Country: US (occurrence: US)
  Receive Date: 20200520
  Receipt Date: 20200520
  Transmission Date: 20200714
  Serious: Yes (Life-Threatening, Hospitalization, Other)
  Sender: FDA-Public Use
  Company Number: None

PATIENT
  Age: 95 Year
  Sex: Male
  Weight: 59 kg

DRUGS (1)
  1. AUGMENTIN [Suspect]
     Active Substance: AMOXICILLIN\CLAVULANATE POTASSIUM
     Indication: GINGIVITIS
     Dates: start: 20200508, end: 20200511

REACTIONS (5)
  - Dyspnoea [None]
  - Malaise [None]
  - Groin pain [None]
  - Thrombocytopenia [None]
  - Chest pain [None]

NARRATIVE: CASE EVENT DATE: 20200509
